FAERS Safety Report 24434064 (Version 5)
Quarter: 2025Q1

REPORT INFORMATION
  Report Type: Spontaneous
  Country: CA (occurrence: CA)
  Receive Date: 20241014
  Receipt Date: 20250321
  Transmission Date: 20250408
  Serious: Yes (Other)
  Sender: MYLAN
  Company Number: CA-MYLANLABS-2024M1082654

PATIENT
  Age: 53 Year
  Sex: Male

DRUGS (756)
  1. LEVOTHYROXINE [Suspect]
     Active Substance: LEVOTHYROXINE
     Indication: Product used for unknown indication
  2. LEVOTHYROXINE [Suspect]
     Active Substance: LEVOTHYROXINE
     Dosage: 100 MILLIGRAM, QD (1 DOSE PER DAY)
  3. EPINEPHRINE [Suspect]
     Active Substance: EPINEPHRINE
     Indication: Product used for unknown indication
  4. GABAPENTIN [Suspect]
     Active Substance: GABAPENTIN
     Indication: Product used for unknown indication
  5. GABAPENTIN [Suspect]
     Active Substance: GABAPENTIN
     Dosage: 900 MILLIGRAM, QD (300 MILLIGRAM, 3 DOSE PER 1 D)
  6. SYNTHROID [Suspect]
     Active Substance: LEVOTHYROXINE SODIUM
     Indication: Product used for unknown indication
  7. ESCITALOPRAM [Suspect]
     Active Substance: ESCITALOPRAM OXALATE
     Indication: Product used for unknown indication
  8. ESCITALOPRAM [Suspect]
     Active Substance: ESCITALOPRAM OXALATE
     Dosage: 10 MILLIGRAM, QD
  9. METFORMIN [Suspect]
     Active Substance: METFORMIN HYDROCHLORIDE
     Indication: Product used for unknown indication
  10. METFORMIN [Suspect]
     Active Substance: METFORMIN HYDROCHLORIDE
     Dosage: 1000 MILLIGRAM, QD (500 MILLIGRAM, 2 DOSE PER 1 D)
  11. BUDESONIDE [Suspect]
     Active Substance: BUDESONIDE
     Indication: Colitis ulcerative
  12. BUDESONIDE [Suspect]
     Active Substance: BUDESONIDE
  13. BUDESONIDE [Suspect]
     Active Substance: BUDESONIDE
  14. BUDESONIDE [Suspect]
     Active Substance: BUDESONIDE
     Dosage: 1 DOSAGE FORM, QD
     Dates: start: 201707
  15. BUDESONIDE [Suspect]
     Active Substance: BUDESONIDE
  16. BUDESONIDE [Suspect]
     Active Substance: BUDESONIDE
     Dosage: 8 DOSAGE FORM, QD
     Dates: start: 201707
  17. BUDESONIDE [Suspect]
     Active Substance: BUDESONIDE
     Dosage: 1 DOSAGE FORM, QD (1 EVERY 1 DAYS)
  18. BUDESONIDE [Suspect]
     Active Substance: BUDESONIDE
     Dosage: 8 DOSAGE FORM, QD (1 EVERY 1 DAYS)
  19. BUDESONIDE [Suspect]
     Active Substance: BUDESONIDE
     Dosage: UNK, QD (1 EVERY 1 DAYS)
  20. BUDESONIDE [Suspect]
     Active Substance: BUDESONIDE
  21. BUDESONIDE [Suspect]
     Active Substance: BUDESONIDE
  22. BUDESONIDE [Suspect]
     Active Substance: BUDESONIDE
  23. BUDESONIDE [Suspect]
     Active Substance: BUDESONIDE
     Dosage: UNK, QID
  24. BUDESONIDE [Suspect]
     Active Substance: BUDESONIDE
  25. BUDESONIDE [Suspect]
     Active Substance: BUDESONIDE
  26. BUDESONIDE [Suspect]
     Active Substance: BUDESONIDE
  27. BUDESONIDE [Suspect]
     Active Substance: BUDESONIDE
     Dosage: UNK, QID
  28. BUDESONIDE [Suspect]
     Active Substance: BUDESONIDE
  29. BUDESONIDE [Suspect]
     Active Substance: BUDESONIDE
  30. BUDESONIDE [Suspect]
     Active Substance: BUDESONIDE
     Dosage: 4 DOSAGE FORM, QD (1 DOSAGE FORM, QD)
     Dates: start: 201707
  31. BUDESONIDE [Suspect]
     Active Substance: BUDESONIDE
  32. BUDESONIDE [Suspect]
     Active Substance: BUDESONIDE
     Indication: Colitis ulcerative
  33. BUDESONIDE [Suspect]
     Active Substance: BUDESONIDE
     Dosage: 1 DOSAGE FORM, QD
     Dates: start: 201707
  34. BUDESONIDE [Suspect]
     Active Substance: BUDESONIDE
  35. BUDESONIDE [Suspect]
     Active Substance: BUDESONIDE
     Dosage: 8 DOSAGE FORM, QD
     Dates: start: 201707
  36. BUDESONIDE [Suspect]
     Active Substance: BUDESONIDE
  37. BUDESONIDE [Suspect]
     Active Substance: BUDESONIDE
     Dosage: 245 DOSAGE FORM, QD
  38. BUDESONIDE [Suspect]
     Active Substance: BUDESONIDE
     Dosage: 212 DOSAGE FORM, QD
  39. BUDESONIDE [Suspect]
     Active Substance: BUDESONIDE
     Dosage: 4 DOSAGE FORM, QD
     Dates: start: 201707
  40. BUDESONIDE [Suspect]
     Active Substance: BUDESONIDE
  41. MESALAMINE [Suspect]
     Active Substance: MESALAMINE
     Indication: Colitis ulcerative
     Dosage: 4.8 GRAM, QD (0.8 G, 3 TABLETS TWO TIMES A DAY (4.8 G DAILY,  01-OCT-2016)
  42. MESALAMINE [Suspect]
     Active Substance: MESALAMINE
     Dosage: 3 DOSAGE FORM, BID (Q12H)
     Dates: start: 20161001
  43. MESALAMINE [Suspect]
     Active Substance: MESALAMINE
     Dosage: 2.4 GRAM, QD (1 EVERY 1 DAYS)
     Dates: start: 20161001
  44. MESALAMINE [Suspect]
     Active Substance: MESALAMINE
     Dosage: 3 GRAM, QD (1 EVERY 1 DAYS)
     Dates: start: 20161001
  45. MESALAMINE [Suspect]
     Active Substance: MESALAMINE
     Dosage: 3 DOSAGE FORM, BID
     Dates: start: 201610
  46. MESALAMINE [Suspect]
     Active Substance: MESALAMINE
     Dosage: 6 DOSAGE FORM, QD
     Dates: start: 20161001
  47. MESALAMINE [Suspect]
     Active Substance: MESALAMINE
     Dosage: 3 GRAM, BID
     Dates: start: 20161001
  48. MESALAMINE [Suspect]
     Active Substance: MESALAMINE
     Dosage: 6 DOSAGE FORM, BID
     Dates: start: 201610
  49. MESALAMINE [Suspect]
     Active Substance: MESALAMINE
     Dosage: 6 DOSAGE FORM, QD (3 DOSAGE FORM, BID)
     Dates: start: 20161001
  50. MESALAMINE [Suspect]
     Active Substance: MESALAMINE
     Dates: start: 20170101, end: 20170901
  51. MESALAMINE [Suspect]
     Active Substance: MESALAMINE
     Dosage: 3 DOSAGE FORM, BID,3 DOSAGE FORM, Q12H
     Dates: start: 20161001
  52. MESALAMINE [Suspect]
     Active Substance: MESALAMINE
  53. MESALAMINE [Suspect]
     Active Substance: MESALAMINE
  54. MESALAMINE [Suspect]
     Active Substance: MESALAMINE
     Dosage: 4.8 GRAM, QD
     Dates: start: 20161001
  55. MESALAMINE [Suspect]
     Active Substance: MESALAMINE
  56. MESALAMINE [Suspect]
     Active Substance: MESALAMINE
     Indication: Colitis ulcerative
     Dosage: 3 DOSAGE FORM, BID (0.8 G, 3 TABLETS TWO TIMES A DAY (4.8 G DAILY)
     Dates: start: 201610
  57. MESALAMINE [Suspect]
     Active Substance: MESALAMINE
     Dosage: 8 DOSAGE FORM, QD
     Dates: start: 201707
  58. MESALAMINE [Suspect]
     Active Substance: MESALAMINE
     Dosage: 3 GRAM, QD
     Dates: start: 20161001
  59. MESALAMINE [Suspect]
     Active Substance: MESALAMINE
     Dosage: 4.8 GRAM, QD
     Dates: start: 20161001
  60. MESALAMINE [Suspect]
     Active Substance: MESALAMINE
     Dosage: 6 DOSAGE FORM, BID (2 EVERY 1 DAYS)
     Dates: start: 20161001
  61. MESALAMINE [Suspect]
     Active Substance: MESALAMINE
     Dosage: 6 DOSAGE FORM, QD
     Dates: start: 20161001
  62. MESALAMINE [Suspect]
     Active Substance: MESALAMINE
     Dosage: 2.4 GRAM, QD
     Dates: start: 20161001
  63. MESALAMINE [Suspect]
     Active Substance: MESALAMINE
     Dosage: 3 DOSAGE FORM, BID
     Dates: start: 201610
  64. MESALAMINE [Suspect]
     Active Substance: MESALAMINE
     Dosage: 2.4 GRAM, QD (1 DOSAGE FORM)
     Dates: start: 201707
  65. MESALAMINE [Suspect]
     Active Substance: MESALAMINE
     Indication: Product used for unknown indication
     Dosage: 6 DOSAGE FORM, QD
     Dates: start: 201610
  66. BUDESONIDE [Suspect]
     Active Substance: BUDESONIDE
     Indication: Colitis ulcerative
  67. BUDESONIDE [Suspect]
     Active Substance: BUDESONIDE
  68. BUDESONIDE [Suspect]
     Active Substance: BUDESONIDE
     Dosage: 1 DOSAGE FORM, QD
     Dates: start: 20170701
  69. BUDESONIDE [Suspect]
     Active Substance: BUDESONIDE
  70. BUDESONIDE [Suspect]
     Active Substance: BUDESONIDE
     Dosage: 1 DOSAGE FORM, QD
     Dates: start: 201707
  71. BUDESONIDE [Suspect]
     Active Substance: BUDESONIDE
  72. BUDESONIDE [Suspect]
     Active Substance: BUDESONIDE
  73. BUDESONIDE [Suspect]
     Active Substance: BUDESONIDE
  74. BUDESONIDE [Suspect]
     Active Substance: BUDESONIDE
  75. MESALAMINE [Suspect]
     Active Substance: MESALAMINE
     Indication: Colitis ulcerative
     Dates: start: 20160101, end: 201610
  76. MESALAMINE [Suspect]
     Active Substance: MESALAMINE
  77. MESALAMINE [Suspect]
     Active Substance: MESALAMINE
  78. MESALAMINE [Suspect]
     Active Substance: MESALAMINE
     Dates: start: 20160101, end: 20161001
  79. MESALAMINE [Suspect]
     Active Substance: MESALAMINE
     Dosage: 6 DOSAGE FORM, QD
     Dates: start: 201610
  80. MESALAMINE [Suspect]
     Active Substance: MESALAMINE
     Dosage: 6 DOSAGE FORM, QD
     Dates: start: 20161001
  81. MESALAMINE [Suspect]
     Active Substance: MESALAMINE
  82. MESALAMINE [Suspect]
     Active Substance: MESALAMINE
  83. MESALAMINE [Suspect]
     Active Substance: MESALAMINE
  84. MESALAMINE [Suspect]
     Active Substance: MESALAMINE
     Dosage: 4.8 GRAM, QD
     Dates: start: 20170101
  85. MESALAMINE [Suspect]
     Active Substance: MESALAMINE
     Dates: start: 20170101, end: 20170901
  86. MESALAMINE [Suspect]
     Active Substance: MESALAMINE
     Dosage: 2.4 GRAM, QD
     Dates: start: 20161001
  87. MESALAMINE [Suspect]
     Active Substance: MESALAMINE
  88. MESALAMINE [Suspect]
     Active Substance: MESALAMINE
     Dosage: 4.8 GRAM, QD
     Dates: start: 20161001
  89. MESALAMINE [Suspect]
     Active Substance: MESALAMINE
     Dates: start: 20170101, end: 20170901
  90. MESALAMINE [Suspect]
     Active Substance: MESALAMINE
  91. MESALAMINE [Suspect]
     Active Substance: MESALAMINE
     Dates: start: 201601, end: 201610
  92. MESALAMINE [Suspect]
     Active Substance: MESALAMINE
  93. MESALAMINE [Suspect]
     Active Substance: MESALAMINE
  94. MESALAMINE [Suspect]
     Active Substance: MESALAMINE
     Dates: start: 20160101, end: 201610
  95. MESALAMINE [Suspect]
     Active Substance: MESALAMINE
     Dates: start: 20160101, end: 20161001
  96. MESALAMINE [Suspect]
     Active Substance: MESALAMINE
  97. MESALAMINE [Suspect]
     Active Substance: MESALAMINE
     Dosage: 1 DOSAGE FORM, QD (1 DOSE PER 1 DAY)
  98. MESALAMINE [Suspect]
     Active Substance: MESALAMINE
     Dosage: 3 GRAM, QD (1 DOSE PER DAY)
  99. MESALAMINE [Suspect]
     Active Substance: MESALAMINE
  100. MESALAMINE [Suspect]
     Active Substance: MESALAMINE
  101. MESALAMINE [Suspect]
     Active Substance: MESALAMINE
  102. MESALAMINE [Suspect]
     Active Substance: MESALAMINE
  103. MESALAMINE [Suspect]
     Active Substance: MESALAMINE
     Dosage: 6 DOSAGE FORM, QD (1 DOSE PER 1 DAY)
  104. MESALAMINE [Suspect]
     Active Substance: MESALAMINE
     Dosage: 1 DOSAGE FORM, QD (1 DOSE PER 1 DAY)
  105. MESALAMINE [Suspect]
     Active Substance: MESALAMINE
  106. MESALAMINE [Suspect]
     Active Substance: MESALAMINE
     Indication: Colitis ulcerative
  107. MESALAMINE [Suspect]
     Active Substance: MESALAMINE
  108. MESALAMINE [Suspect]
     Active Substance: MESALAMINE
     Indication: Colitis ulcerative
  109. MESALAMINE [Suspect]
     Active Substance: MESALAMINE
     Dates: start: 20160101, end: 20161001
  110. MESALAMINE [Suspect]
     Active Substance: MESALAMINE
     Dates: start: 20170101, end: 20170901
  111. MESALAMINE [Suspect]
     Active Substance: MESALAMINE
     Dates: start: 20160101, end: 20161001
  112. MESALAMINE [Suspect]
     Active Substance: MESALAMINE
     Dates: start: 20170101, end: 20170901
  113. MESALAMINE [Suspect]
     Active Substance: MESALAMINE
  114. MESALAMINE [Suspect]
     Active Substance: MESALAMINE
     Dosage: 4.8 MILLIGRAM, QD
     Dates: start: 20170101
  115. MESALAMINE [Suspect]
     Active Substance: MESALAMINE
     Dosage: 3 DOSAGE FORM, BID
     Dates: start: 201610
  116. MESALAMINE [Suspect]
     Active Substance: MESALAMINE
  117. MESALAMINE [Suspect]
     Active Substance: MESALAMINE
     Dosage: 6 DOSAGE FORM, QD
     Dates: start: 20161001
  118. MESALAMINE [Suspect]
     Active Substance: MESALAMINE
  119. MESALAMINE [Suspect]
     Active Substance: MESALAMINE
     Dosage: 2.4 GRAM, QD
     Dates: start: 20161001
  120. MESALAMINE [Suspect]
     Active Substance: MESALAMINE
     Dosage: 4.8 MILLIGRAM, QD
     Dates: start: 20161001
  121. MESALAMINE [Suspect]
     Active Substance: MESALAMINE
  122. MESALAMINE [Suspect]
     Active Substance: MESALAMINE
  123. MESALAMINE [Suspect]
     Active Substance: MESALAMINE
  124. MESALAMINE [Suspect]
     Active Substance: MESALAMINE
     Dosage: 6 DOSAGE FORM, QD(3 DOSAGE FORM, BID )
     Dates: start: 201610
  125. MESALAMINE [Suspect]
     Active Substance: MESALAMINE
     Dosage: 2.4 GRAM, QD (0.8 G, 3 TABLETS TWO TIMES A DAY (4.8 G DAILY))
     Dates: start: 20161001
  126. MESALAMINE [Suspect]
     Active Substance: MESALAMINE
  127. MESALAMINE [Suspect]
     Active Substance: MESALAMINE
  128. MESALAMINE [Suspect]
     Active Substance: MESALAMINE
     Dosage: 3 DOSAGE FORM, BID
     Dates: start: 201601
  129. MESALAMINE [Suspect]
     Active Substance: MESALAMINE
     Dates: start: 20170101, end: 20171001
  130. MESALAMINE [Suspect]
     Active Substance: MESALAMINE
     Dates: start: 2017, end: 201709
  131. MESALAMINE [Suspect]
     Active Substance: MESALAMINE
     Dosage: 6 DOSAGE FORM, QD
     Dates: start: 20161001
  132. MESALAMINE [Suspect]
     Active Substance: MESALAMINE
  133. MESALAMINE [Suspect]
     Active Substance: MESALAMINE
     Dosage: 3 GRAM, QD
     Dates: start: 20160110
  134. MESALAMINE [Suspect]
     Active Substance: MESALAMINE
     Dates: start: 20170101, end: 20171001
  135. MESALAMINE [Suspect]
     Active Substance: MESALAMINE
     Dosage: 4.8 GRAM, QD
     Dates: start: 20161001
  136. MESALAMINE [Suspect]
     Active Substance: MESALAMINE
     Dosage: 6 DOSAGE FORM, QD (3 DOSAGE FORM, BID)
     Dates: start: 2016
  137. MESALAMINE [Suspect]
     Active Substance: MESALAMINE
  138. MESALAMINE [Suspect]
     Active Substance: MESALAMINE
     Dosage: 4.8 GRAM, QD
     Dates: start: 20161001
  139. MESALAMINE [Suspect]
     Active Substance: MESALAMINE
  140. MESALAMINE [Suspect]
     Active Substance: MESALAMINE
     Dosage: 1 DOSAGE FORM, QD
     Dates: start: 201707
  141. MESALAMINE [Suspect]
     Active Substance: MESALAMINE
  142. MESALAMINE [Suspect]
     Active Substance: MESALAMINE
     Indication: Colitis ulcerative
  143. MESALAMINE [Suspect]
     Active Substance: MESALAMINE
  144. MESALAMINE [Suspect]
     Active Substance: MESALAMINE
     Dates: start: 20160101, end: 20161001
  145. MESALAMINE [Suspect]
     Active Substance: MESALAMINE
  146. MESALAMINE [Suspect]
     Active Substance: MESALAMINE
     Dates: start: 201601, end: 201610
  147. BUDESONIDE [Suspect]
     Active Substance: BUDESONIDE
     Indication: Colitis ulcerative
     Dosage: 1 DOSAGE FORM, QD
     Dates: start: 201707, end: 201707
  148. BUDESONIDE [Suspect]
     Active Substance: BUDESONIDE
  149. BUDESONIDE [Suspect]
     Active Substance: BUDESONIDE
  150. BUDESONIDE [Suspect]
     Active Substance: BUDESONIDE
  151. BUDESONIDE [Suspect]
     Active Substance: BUDESONIDE
     Dosage: 1 DOSAGE FORM, QD
     Dates: start: 20170701
  152. BUDESONIDE [Suspect]
     Active Substance: BUDESONIDE
  153. BUDESONIDE [Suspect]
     Active Substance: BUDESONIDE
  154. BUDESONIDE [Suspect]
     Active Substance: BUDESONIDE
  155. BUDESONIDE [Suspect]
     Active Substance: BUDESONIDE
     Dosage: 8 DOSAGE FORM, QD (1 DOSE PER DAY)
  156. BUDESONIDE [Suspect]
     Active Substance: BUDESONIDE
     Dosage: UNK, QD (A DOSE PER DAY)
  157. BUDESONIDE [Suspect]
     Active Substance: BUDESONIDE
     Dosage: 1 DOSAGE FORM, QID
     Dates: start: 201707
  158. BUDESONIDE [Suspect]
     Active Substance: BUDESONIDE
     Dosage: 245 DOSAGE FORM, QID (1 DOSE PER DAY)
  159. BUDESONIDE [Suspect]
     Active Substance: BUDESONIDE
  160. BUDESONIDE [Suspect]
     Active Substance: BUDESONIDE
  161. BUDESONIDE [Suspect]
     Active Substance: BUDESONIDE
  162. ASPIRIN [Suspect]
     Active Substance: ASPIRIN
     Indication: Ill-defined disorder
  163. ASPIRIN [Suspect]
     Active Substance: ASPIRIN
     Indication: Colitis ulcerative
  164. ROSUVASTATIN CALCIUM [Suspect]
     Active Substance: ROSUVASTATIN CALCIUM
     Indication: Blood cholesterol increased
     Dosage: 10 MILLIGRAM, QD (1 EVERY 1 DAYS)
  165. ROSUVASTATIN CALCIUM [Suspect]
     Active Substance: ROSUVASTATIN CALCIUM
     Indication: Ill-defined disorder
  166. ROSUVASTATIN CALCIUM [Suspect]
     Active Substance: ROSUVASTATIN CALCIUM
     Indication: Ill-defined disorder
  167. ROSUVASTATIN CALCIUM [Suspect]
     Active Substance: ROSUVASTATIN CALCIUM
     Indication: Blood cholesterol increased
     Dosage: 10 MILLIGRAM, QD (1 EVERY 1 DAYS)
  168. ROSUVASTATIN CALCIUM [Suspect]
     Active Substance: ROSUVASTATIN CALCIUM
  169. ROSUVASTATIN CALCIUM [Suspect]
     Active Substance: ROSUVASTATIN CALCIUM
  170. MESALAMINE [Suspect]
     Active Substance: MESALAMINE
     Indication: Colitis ulcerative
  171. MESALAMINE [Suspect]
     Active Substance: MESALAMINE
  172. MESALAMINE [Suspect]
     Active Substance: MESALAMINE
     Dates: start: 20160101, end: 20161001
  173. MESALAMINE [Suspect]
     Active Substance: MESALAMINE
  174. MESALAMINE [Suspect]
     Active Substance: MESALAMINE
  175. MESALAMINE [Suspect]
     Active Substance: MESALAMINE
     Dosage: UNK, QD (1 EVERY1 DAYS)
  176. MESALAMINE [Suspect]
     Active Substance: MESALAMINE
  177. MESALAMINE [Suspect]
     Active Substance: MESALAMINE
  178. MESALAMINE [Suspect]
     Active Substance: MESALAMINE
  179. MESALAMINE [Suspect]
     Active Substance: MESALAMINE
  180. MESALAMINE [Suspect]
     Active Substance: MESALAMINE
     Dosage: 6 DOSAGE FORM, QD (1 EVERY 1 DAYS)
  181. MESALAMINE [Suspect]
     Active Substance: MESALAMINE
     Dosage: 3 GRAM, QD (1 EVERY 1 DAYS)
  182. MESALAMINE [Suspect]
     Active Substance: MESALAMINE
     Dosage: 2.4 GRAM, QD QD (1 EVERY 1 DAYS)
  183. MESALAMINE [Suspect]
     Active Substance: MESALAMINE
     Dosage: 2.4 GRAM, QD QD (1 EVERY 1 DAYS)
  184. MESALAMINE [Suspect]
     Active Substance: MESALAMINE
     Dosage: 6 DOSAGE FORM, QD (3 DOSAGE FORM, 2 EVERY 1 DAYS)
  185. MESALAMINE [Suspect]
     Active Substance: MESALAMINE
  186. MESALAMINE [Suspect]
     Active Substance: MESALAMINE
     Dosage: 1 DOSAGE FORM, QD (1 EVERY 1 DAYS)
  187. MESALAMINE [Suspect]
     Active Substance: MESALAMINE
     Dosage: 4.8 MILLIGRAM, QD QD (1 EVERY 1 DAYS)
  188. MESALAMINE [Suspect]
     Active Substance: MESALAMINE
  189. MESALAMINE [Suspect]
     Active Substance: MESALAMINE
  190. MESALAMINE [Suspect]
     Active Substance: MESALAMINE
  191. MESALAMINE [Suspect]
     Active Substance: MESALAMINE
     Dosage: 3 DOSAGE FORM, BID (2 EVERY 1 DAYS)
  192. MESALAMINE [Suspect]
     Active Substance: MESALAMINE
     Indication: Colitis ulcerative
     Dosage: 3 GRAM, BID (EVERY 12 HOURS)
  193. MESALAMINE [Suspect]
     Active Substance: MESALAMINE
  194. MESALAMINE [Suspect]
     Active Substance: MESALAMINE
     Dosage: 1 DOSAGE FORM, QD (1 EVERY 1 DAYS)
  195. MESALAMINE [Suspect]
     Active Substance: MESALAMINE
     Dosage: 12 DOSAGE FORM, QD (1 EVERY 1 DAYS)
  196. MESALAMINE [Suspect]
     Active Substance: MESALAMINE
  197. MESALAMINE [Suspect]
     Active Substance: MESALAMINE
     Dosage: 4.8 DOSAGE FORM, QD  (1 EVERY 1 DAYS)
  198. MESALAMINE [Suspect]
     Active Substance: MESALAMINE
     Dosage: 4.8 DOSAGE FORM, QD  (1 EVERY 1 DAYS)
     Dates: start: 20161001
  199. MESALAMINE [Suspect]
     Active Substance: MESALAMINE
     Dosage: 6 DOSAGE FORM, QD (1 EVERY 1 DAYS)
  200. MESALAMINE [Suspect]
     Active Substance: MESALAMINE
     Dosage: 3 GRAM, BID (2 EVERY 1 DAYS)
  201. MESALAMINE [Suspect]
     Active Substance: MESALAMINE
     Dosage: 1 DOSAGE FORM, QD (1 EVERY 1 DAYS)
  202. MESALAMINE [Suspect]
     Active Substance: MESALAMINE
     Dosage: 6 DOSAGE FORM, QD (3 GRAM, EVERY 12 HOURS)
  203. MESALAMINE [Suspect]
     Active Substance: MESALAMINE
  204. MESALAMINE [Suspect]
     Active Substance: MESALAMINE
     Dosage: 6 DOSAGE FORM, QD (3 DOSAGE FORM, Q12H)
     Dates: start: 20161001
  205. MESALAMINE [Suspect]
     Active Substance: MESALAMINE
     Dosage: 12 DOSAGE FORM, QD (6.0 DOSAGE FORM, 2 EVERY 1 DAYS)
     Dates: start: 20161001
  206. MESALAMINE [Suspect]
     Active Substance: MESALAMINE
     Dosage: 1 DOSAGE FORM, QD (6.0 DOSAGE FORM, 1 EVERY 1 DAYS)
  207. MESALAMINE [Suspect]
     Active Substance: MESALAMINE
     Dosage: 6 GRAM, QD (3 GRAM, 2 EVERY 1 DAYS)
  208. ROSUVASTATIN CALCIUM [Suspect]
     Active Substance: ROSUVASTATIN CALCIUM
     Indication: Ill-defined disorder
  209. ROSUVASTATIN CALCIUM [Suspect]
     Active Substance: ROSUVASTATIN CALCIUM
     Indication: Blood cholesterol increased
  210. ROSUVASTATIN CALCIUM [Suspect]
     Active Substance: ROSUVASTATIN CALCIUM
     Dosage: 10 MILLIGRAM, QD (1 EVERY 1 DAYS)
  211. ROSUVASTATIN CALCIUM [Suspect]
     Active Substance: ROSUVASTATIN CALCIUM
  212. EPINEPHRINE [Suspect]
     Active Substance: EPINEPHRINE
     Indication: Product used for unknown indication
  213. ASPIRIN [Suspect]
     Active Substance: ASPIRIN
     Indication: Product used for unknown indication
  214. ADALIMUMAB [Suspect]
     Active Substance: ADALIMUMAB
     Indication: Crohn^s disease
  215. ADALIMUMAB [Suspect]
     Active Substance: ADALIMUMAB
     Indication: Deep vein thrombosis
  216. ADALIMUMAB [Suspect]
     Active Substance: ADALIMUMAB
     Indication: Colitis ulcerative
  217. ADALIMUMAB [Suspect]
     Active Substance: ADALIMUMAB
  218. ADALIMUMAB [Suspect]
     Active Substance: ADALIMUMAB
  219. ESOMEPRAZOLE [Suspect]
     Active Substance: ESOMEPRAZOLE
     Indication: Gastritis
  220. WARFARIN [Suspect]
     Active Substance: WARFARIN
     Indication: Deep vein thrombosis
  221. WARFARIN [Suspect]
     Active Substance: WARFARIN
     Indication: Colitis ulcerative
  222. WARFARIN [Suspect]
     Active Substance: WARFARIN
     Indication: Crohn^s disease
  223. WARFARIN [Suspect]
     Active Substance: WARFARIN
  224. WARFARIN [Suspect]
     Active Substance: WARFARIN
     Dosage: 1 DOSAGE FORM, QD
     Dates: start: 201707
  225. WARFARIN [Suspect]
     Active Substance: WARFARIN
  226. WARFARIN [Suspect]
     Active Substance: WARFARIN
  227. WARFARIN [Suspect]
     Active Substance: WARFARIN
  228. WARFARIN [Suspect]
     Active Substance: WARFARIN
  229. WARFARIN [Suspect]
     Active Substance: WARFARIN
  230. WARFARIN [Suspect]
     Active Substance: WARFARIN
  231. WARFARIN [Suspect]
     Active Substance: WARFARIN
  232. WARFARIN [Suspect]
     Active Substance: WARFARIN
  233. WARFARIN [Suspect]
     Active Substance: WARFARIN
     Dosage: 1 DOSAGE FORM, QD (1 DOSE PER DAY)
     Dates: start: 2009
  234. WARFARIN [Suspect]
     Active Substance: WARFARIN
  235. WARFARIN [Suspect]
     Active Substance: WARFARIN
  236. FELODIPINE [Suspect]
     Active Substance: FELODIPINE
     Indication: Hypertension
     Dosage: 3 MILLIGRAM, QD
  237. FELODIPINE [Suspect]
     Active Substance: FELODIPINE
     Dosage: 5 MILLIGRAM, QD (2.5 MILLIGRAM, 2 DOSE PER 1 D )
  238. FELODIPINE [Suspect]
     Active Substance: FELODIPINE
     Dosage: 2.5 MILLIGRAM, QD
  239. HYDROCORTISONE [Suspect]
     Active Substance: HYDROCORTISONE
     Indication: Colitis ulcerative
     Dosage: 1 DOSAGE FORM, QD
     Dates: start: 201807, end: 201807
  240. HYDROCORTISONE [Suspect]
     Active Substance: HYDROCORTISONE
  241. HYDROCORTISONE [Suspect]
     Active Substance: HYDROCORTISONE
     Dosage: 8 DOSAGE FORM, QD
     Dates: start: 201807
  242. HYDROCORTISONE [Suspect]
     Active Substance: HYDROCORTISONE
  243. HYDROCORTISONE [Suspect]
     Active Substance: HYDROCORTISONE
  244. HYDROCORTISONE [Suspect]
     Active Substance: HYDROCORTISONE
     Dosage: 1 DOSAGE FORM, QD (1 EVERY 1 DAYS)
  245. HYDROCORTISONE [Suspect]
     Active Substance: HYDROCORTISONE
  246. HYDROCORTISONE [Suspect]
     Active Substance: HYDROCORTISONE
     Dosage: 8 DOSAGE FORM, QD
     Dates: start: 201807
  247. HYDROCORTISONE [Suspect]
     Active Substance: HYDROCORTISONE
  248. HYDROCORTISONE [Suspect]
     Active Substance: HYDROCORTISONE
     Dosage: 3 DOSAGE FORM, BID(6 DOSAGE FORM, QD)
     Dates: start: 201610
  249. HYDROCORTISONE [Suspect]
     Active Substance: HYDROCORTISONE
     Dosage: 1 DOSAGE FORM, QD
  250. HYDROCORTISONE [Suspect]
     Active Substance: HYDROCORTISONE
  251. HYDROCORTISONE [Suspect]
     Active Substance: HYDROCORTISONE
     Dosage: 1 DOSAGE FORM, QD
     Dates: start: 201807
  252. HYDROCORTISONE [Suspect]
     Active Substance: HYDROCORTISONE
  253. HYDROCORTISONE [Suspect]
     Active Substance: HYDROCORTISONE
     Dosage: 8 DOSAGE FORM, QD (1 EVERY 1 DAYS)
  254. HYDROCORTISONE [Suspect]
     Active Substance: HYDROCORTISONE
  255. HYDROCORTISONE [Suspect]
     Active Substance: HYDROCORTISONE
     Dosage: 3 DOSAGE FORM, BID (2 EVERY 1 DAYS)
  256. HYDROCORTISONE [Suspect]
     Active Substance: HYDROCORTISONE
  257. HYDROCORTISONE [Suspect]
     Active Substance: HYDROCORTISONE
  258. HYDROCORTISONE [Suspect]
     Active Substance: HYDROCORTISONE
     Dosage: 4 DOSAGE FORM, QD (1 DOSAGE FORM, QD)
     Dates: start: 201807
  259. HYDROCORTISONE [Suspect]
     Active Substance: HYDROCORTISONE
     Dosage: 6 DOSAGE FORM, QD (1 DOSE PER DAY)
  260. CORTIFOAM [Suspect]
     Active Substance: HYDROCORTISONE ACETATE
     Indication: Colitis ulcerative
  261. CORTIFOAM [Suspect]
     Active Substance: HYDROCORTISONE ACETATE
     Indication: Deep vein thrombosis
  262. CORTIFOAM [Suspect]
     Active Substance: HYDROCORTISONE ACETATE
     Indication: Colitis ulcerative
  263. CORTIFOAM [Suspect]
     Active Substance: HYDROCORTISONE ACETATE
     Indication: Deep vein thrombosis
  264. CORTIFOAM [Suspect]
     Active Substance: HYDROCORTISONE ACETATE
  265. CORTIFOAM [Suspect]
     Active Substance: HYDROCORTISONE ACETATE
     Dosage: 1 DOSAGE FORM, QD
     Dates: start: 201707
  266. CORTIFOAM [Suspect]
     Active Substance: HYDROCORTISONE ACETATE
     Dosage: 1 DOSAGE FORM, QD
     Dates: start: 201707
  267. CORTIFOAM [Suspect]
     Active Substance: HYDROCORTISONE ACETATE
     Dosage: 1 DOSAGE FORM, QD (1 EVERY 1 DAYS)
  268. CORTIFOAM [Suspect]
     Active Substance: HYDROCORTISONE ACETATE
  269. CORTIFOAM [Suspect]
     Active Substance: HYDROCORTISONE ACETATE
     Dosage: 1 DOSAGE FORM, QD (1 EVERY 1 DAYS)
  270. CORTIFOAM [Suspect]
     Active Substance: HYDROCORTISONE ACETATE
  271. CORTIFOAM [Suspect]
     Active Substance: HYDROCORTISONE ACETATE
  272. CORTIFOAM [Suspect]
     Active Substance: HYDROCORTISONE ACETATE
  273. CORTIFOAM [Suspect]
     Active Substance: HYDROCORTISONE ACETATE
     Dosage: 32 DOSAGE FORM, QD(8 DOSAGE FORM, Q8WK)
     Dates: start: 201707
  274. CORTIFOAM [Suspect]
     Active Substance: HYDROCORTISONE ACETATE
  275. HYDROCORTISONE ACETATE [Suspect]
     Active Substance: HYDROCORTISONE ACETATE
     Indication: Colitis ulcerative
     Dosage: 1 DOSAGE FORM, QD
  276. HYDROCORTISONE ACETATE [Suspect]
     Active Substance: HYDROCORTISONE ACETATE
     Indication: Crohn^s disease
  277. HYDROCORTISONE ACETATE [Suspect]
     Active Substance: HYDROCORTISONE ACETATE
     Indication: Colitis ulcerative
  278. HYDROCORTISONE ACETATE [Suspect]
     Active Substance: HYDROCORTISONE ACETATE
     Dosage: 1 DOSAGE FORM
     Dates: start: 201807
  279. HYDROCORTISONE ACETATE [Suspect]
     Active Substance: HYDROCORTISONE ACETATE
  280. HYDROCORTISONE ACETATE [Suspect]
     Active Substance: HYDROCORTISONE ACETATE
  281. HYDROCORTISONE ACETATE [Suspect]
     Active Substance: HYDROCORTISONE ACETATE
  282. HYDROCORTISONE ACETATE [Suspect]
     Active Substance: HYDROCORTISONE ACETATE
     Dosage: 8 DOSAGE FORM, QD
     Dates: start: 201707
  283. HYDROCORTISONE ACETATE [Suspect]
     Active Substance: HYDROCORTISONE ACETATE
     Dosage: 1 DOSAGE FORM, QD
     Dates: start: 201707
  284. HYDROCORTISONE ACETATE [Suspect]
     Active Substance: HYDROCORTISONE ACETATE
  285. HYDROCORTISONE ACETATE [Suspect]
     Active Substance: HYDROCORTISONE ACETATE
  286. HYDROCORTISONE ACETATE [Suspect]
     Active Substance: HYDROCORTISONE ACETATE
     Dates: start: 20160101, end: 20161001
  287. CORTIFOAM [Suspect]
     Active Substance: HYDROCORTISONE ACETATE
     Indication: Colitis ulcerative
  288. CORTIFOAM [Suspect]
     Active Substance: HYDROCORTISONE ACETATE
     Indication: Deep vein thrombosis
  289. CORTIFOAM [Suspect]
     Active Substance: HYDROCORTISONE ACETATE
     Dosage: 1 DOSAGE FORM, QD
     Dates: start: 201707
  290. CORTIFOAM [Suspect]
     Active Substance: HYDROCORTISONE ACETATE
  291. CORTIFOAM [Suspect]
     Active Substance: HYDROCORTISONE ACETATE
     Dosage: 1 DOSAGE FORM, QD
     Dates: start: 201707
  292. CORTIFOAM [Suspect]
     Active Substance: HYDROCORTISONE ACETATE
  293. CORTIFOAM [Suspect]
     Active Substance: HYDROCORTISONE ACETATE
  294. HYDROCORTISONE ACETATE [Suspect]
     Active Substance: HYDROCORTISONE ACETATE
     Indication: Product used for unknown indication
  295. ALBENDAZOLE [Suspect]
     Active Substance: ALBENDAZOLE
     Indication: Colitis ulcerative
  296. ALBENDAZOLE [Suspect]
     Active Substance: ALBENDAZOLE
     Indication: Deep vein thrombosis
  297. ALBENDAZOLE [Suspect]
     Active Substance: ALBENDAZOLE
     Indication: Crohn^s disease
  298. ENTYVIO [Suspect]
     Active Substance: VEDOLIZUMAB
     Indication: Colitis ulcerative
  299. ENTYVIO [Suspect]
     Active Substance: VEDOLIZUMAB
     Indication: Deep vein thrombosis
  300. ENTYVIO [Suspect]
     Active Substance: VEDOLIZUMAB
  301. ENTYVIO [Suspect]
     Active Substance: VEDOLIZUMAB
  302. ENTYVIO [Suspect]
     Active Substance: VEDOLIZUMAB
  303. ENTYVIO [Suspect]
     Active Substance: VEDOLIZUMAB
  304. ENTYVIO [Suspect]
     Active Substance: VEDOLIZUMAB
     Dosage: 8 DOSAGE FORM
     Dates: start: 201807
  305. ENTYVIO [Suspect]
     Active Substance: VEDOLIZUMAB
  306. ENTYVIO [Suspect]
     Active Substance: VEDOLIZUMAB
  307. ENTYVIO [Suspect]
     Active Substance: VEDOLIZUMAB
  308. ENTYVIO [Suspect]
     Active Substance: VEDOLIZUMAB
     Indication: Colitis ulcerative
  309. ENTYVIO [Suspect]
     Active Substance: VEDOLIZUMAB
     Indication: Deep vein thrombosis
  310. ENTYVIO [Suspect]
     Active Substance: VEDOLIZUMAB
  311. ENTYVIO [Suspect]
     Active Substance: VEDOLIZUMAB
  312. ENTYVIO [Suspect]
     Active Substance: VEDOLIZUMAB
  313. ENTYVIO [Suspect]
     Active Substance: VEDOLIZUMAB
  314. ENTYVIO [Suspect]
     Active Substance: VEDOLIZUMAB
     Dosage: UNK, QD (1 EVERY1 DAYS)
  315. ENTYVIO [Suspect]
     Active Substance: VEDOLIZUMAB
  316. ENTYVIO [Suspect]
     Active Substance: VEDOLIZUMAB
  317. ENTYVIO [Suspect]
     Active Substance: VEDOLIZUMAB
  318. ENTYVIO [Suspect]
     Active Substance: VEDOLIZUMAB
     Dosage: 1 DOSAGE FORM, QD (1 EVERY 1 DAYS)
  319. ENTYVIO [Suspect]
     Active Substance: VEDOLIZUMAB
  320. ENTYVIO [Suspect]
     Active Substance: VEDOLIZUMAB
  321. ENTYVIO [Suspect]
     Active Substance: VEDOLIZUMAB
  322. PREDNISONE [Suspect]
     Active Substance: PREDNISONE
     Indication: Colitis ulcerative
  323. PREDNISONE [Suspect]
     Active Substance: PREDNISONE
  324. PREDNISONE [Suspect]
     Active Substance: PREDNISONE
  325. PREDNISONE [Suspect]
     Active Substance: PREDNISONE
  326. PREDNISONE [Suspect]
     Active Substance: PREDNISONE
  327. PREDNISONE [Suspect]
     Active Substance: PREDNISONE
  328. PREDNISONE [Suspect]
     Active Substance: PREDNISONE
  329. PREDNISONE [Suspect]
     Active Substance: PREDNISONE
  330. PREDNISONE [Suspect]
     Active Substance: PREDNISONE
  331. PREDNISONE [Suspect]
     Active Substance: PREDNISONE
     Dosage: 50 MILLIGRAM, QD (1 EVERY 1 DAYS)
  332. PREDNISONE [Suspect]
     Active Substance: PREDNISONE
     Dosage: 40 MILLIGRAM, QD (1 EVERY 1 DAYS
  333. PREDNISONE [Suspect]
     Active Substance: PREDNISONE
  334. INFLIXIMAB [Suspect]
     Active Substance: INFLIXIMAB
     Indication: Colitis ulcerative
  335. INFLIXIMAB [Suspect]
     Active Substance: INFLIXIMAB
     Indication: Crohn^s disease
  336. INFLIXIMAB [Suspect]
     Active Substance: INFLIXIMAB
  337. INFLIXIMAB [Suspect]
     Active Substance: INFLIXIMAB
     Dates: start: 20170101, end: 20170901
  338. INFLIXIMAB [Suspect]
     Active Substance: INFLIXIMAB
     Dates: start: 20170101, end: 20170901
  339. INFLIXIMAB [Suspect]
     Active Substance: INFLIXIMAB
  340. INFLIXIMAB [Suspect]
     Active Substance: INFLIXIMAB
  341. INFLIXIMAB [Suspect]
     Active Substance: INFLIXIMAB
  342. INFLIXIMAB [Suspect]
     Active Substance: INFLIXIMAB
  343. INFLIXIMAB [Suspect]
     Active Substance: INFLIXIMAB
     Dates: start: 20170101, end: 20170901
  344. INFLIXIMAB [Suspect]
     Active Substance: INFLIXIMAB
  345. INFLIXIMAB [Suspect]
     Active Substance: INFLIXIMAB
  346. INFLIXIMAB [Suspect]
     Active Substance: INFLIXIMAB
  347. INFLIXIMAB [Suspect]
     Active Substance: INFLIXIMAB
  348. INFLIXIMAB [Suspect]
     Active Substance: INFLIXIMAB
     Dates: start: 20170101, end: 20170901
  349. INFLIXIMAB [Suspect]
     Active Substance: INFLIXIMAB
  350. INFLIXIMAB [Suspect]
     Active Substance: INFLIXIMAB
  351. INFLIXIMAB [Suspect]
     Active Substance: INFLIXIMAB
  352. HUMIRA [Suspect]
     Active Substance: ADALIMUMAB
     Indication: Deep vein thrombosis
  353. HUMIRA [Suspect]
     Active Substance: ADALIMUMAB
     Indication: Crohn^s disease
  354. HUMIRA [Suspect]
     Active Substance: ADALIMUMAB
     Indication: Deep vein thrombosis
  355. HUMIRA [Suspect]
     Active Substance: ADALIMUMAB
     Indication: Crohn^s disease
  356. HUMIRA [Suspect]
     Active Substance: ADALIMUMAB
  357. HUMIRA [Suspect]
     Active Substance: ADALIMUMAB
     Dosage: 8 DOSAGE FORM, BIMONTHLY (1 DOSE PER 8W)
  358. CORTISONE ACETATE [Suspect]
     Active Substance: CORTISONE ACETATE
     Indication: Product used for unknown indication
  359. PARA-AMINOSALICYLIC ACID [Suspect]
     Active Substance: AMINOSALICYLIC ACID
     Indication: Colitis ulcerative
  360. PARA-AMINOSALICYLIC ACID [Suspect]
     Active Substance: AMINOSALICYLIC ACID
     Indication: Deep vein thrombosis
  361. VEDOLIZUMAB [Suspect]
     Active Substance: VEDOLIZUMAB
     Indication: Colitis ulcerative
  362. VEDOLIZUMAB [Suspect]
     Active Substance: VEDOLIZUMAB
     Indication: Deep vein thrombosis
     Dosage: 1 DOSAGE FORM, QD
  363. VEDOLIZUMAB [Suspect]
     Active Substance: VEDOLIZUMAB
  364. VEDOLIZUMAB [Suspect]
     Active Substance: VEDOLIZUMAB
  365. VEDOLIZUMAB [Suspect]
     Active Substance: VEDOLIZUMAB
     Dosage: 1 DOSAGE FORM, QD
     Dates: start: 201807
  366. VEDOLIZUMAB [Suspect]
     Active Substance: VEDOLIZUMAB
  367. VEDOLIZUMAB [Suspect]
     Active Substance: VEDOLIZUMAB
  368. VEDOLIZUMAB [Suspect]
     Active Substance: VEDOLIZUMAB
  369. VEDOLIZUMAB [Suspect]
     Active Substance: VEDOLIZUMAB
  370. VEDOLIZUMAB [Suspect]
     Active Substance: VEDOLIZUMAB
     Indication: Deep vein thrombosis
  371. VEDOLIZUMAB [Suspect]
     Active Substance: VEDOLIZUMAB
     Indication: Colitis ulcerative
  372. VEDOLIZUMAB [Suspect]
     Active Substance: VEDOLIZUMAB
  373. OXYCODONE HYDROCHLORIDE [Suspect]
     Active Substance: OXYCODONE HYDROCHLORIDE
     Indication: Product used for unknown indication
     Dosage: 5 MILLIGRAM, BID (10 MILLIGRAM DAILY)
  374. OXYCODONE HYDROCHLORIDE [Suspect]
     Active Substance: OXYCODONE HYDROCHLORIDE
  375. MESALAMINE [Suspect]
     Active Substance: MESALAMINE
     Indication: Colitis ulcerative
  376. MESALAMINE [Suspect]
     Active Substance: MESALAMINE
     Dates: start: 20170101, end: 20170901
  377. MESALAMINE [Suspect]
     Active Substance: MESALAMINE
  378. MESALAMINE [Suspect]
     Active Substance: MESALAMINE
  379. MESALAMINE [Suspect]
     Active Substance: MESALAMINE
     Dosage: 2.4 GRAM, QD, 0.8 G, 3 TABLETS TWO TIMES A DAY (4.8 G DAILY)
     Dates: start: 20161001
  380. MESALAMINE [Suspect]
     Active Substance: MESALAMINE
     Dosage: 3 DOSAGE FORM, QD
     Dates: start: 201610
  381. MESALAMINE [Suspect]
     Active Substance: MESALAMINE
  382. MESALAMINE [Suspect]
     Active Substance: MESALAMINE
     Dates: start: 20160101, end: 20161001
  383. MESALAMINE [Suspect]
     Active Substance: MESALAMINE
     Dates: start: 20170101, end: 20170901
  384. MESALAMINE [Suspect]
     Active Substance: MESALAMINE
  385. MESALAMINE [Suspect]
     Active Substance: MESALAMINE
     Dosage: 4.8 GRAM, QD
     Dates: start: 20161001
  386. MESALAMINE [Suspect]
     Active Substance: MESALAMINE
     Dosage: 3 DOSAGE FORM, BID
     Dates: start: 2016
  387. MESALAMINE [Suspect]
     Active Substance: MESALAMINE
     Dates: start: 20170101, end: 20171001
  388. MESALAMINE [Suspect]
     Active Substance: MESALAMINE
  389. MESALAMINE [Suspect]
     Active Substance: MESALAMINE
  390. MESALAMINE [Suspect]
     Active Substance: MESALAMINE
     Dosage: 50 MILLIGRAM, QD
     Dates: start: 20160101, end: 20161001
  391. MESALAMINE [Suspect]
     Active Substance: MESALAMINE
     Dates: start: 20170101, end: 20170901
  392. MESALAMINE [Suspect]
     Active Substance: MESALAMINE
     Dosage: 4.8 MILLIGRAM, QD
     Dates: start: 20161001
  393. MESALAMINE [Suspect]
     Active Substance: MESALAMINE
  394. MESALAMINE [Suspect]
     Active Substance: MESALAMINE
     Dosage: 4.8 MILLIGRAM, QD
     Dates: start: 20170101
  395. MESALAMINE [Suspect]
     Active Substance: MESALAMINE
  396. MESALAMINE [Suspect]
     Active Substance: MESALAMINE
     Dosage: 4.8 GRAM, QD
     Dates: start: 20160101, end: 201709
  397. MESALAMINE [Suspect]
     Active Substance: MESALAMINE
     Dates: start: 20160101, end: 20170901
  398. MESALAMINE [Suspect]
     Active Substance: MESALAMINE
     Dosage: 50 MILLIGRAM, QD
     Dates: start: 20160101, end: 20161001
  399. HYDROCORTISONE SODIUM SUCCINATE [Suspect]
     Active Substance: HYDROCORTISONE SODIUM SUCCINATE
     Indication: Colitis ulcerative
     Dosage: 1 DOSAGE FORM, QD
  400. SULFASALAZINE [Suspect]
     Active Substance: SULFASALAZINE
     Indication: Colitis ulcerative
  401. SULFASALAZINE [Suspect]
     Active Substance: SULFASALAZINE
     Indication: Arthritis
     Dosage: 3 MILLIGRAM, QD (1 EVERY 1 DAYS)
  402. SULFASALAZINE [Suspect]
     Active Substance: SULFASALAZINE
     Dates: start: 20091001, end: 20161001
  403. SULFASALAZINE [Suspect]
     Active Substance: SULFASALAZINE
     Dates: start: 20090101, end: 20160101
  404. SULFASALAZINE [Suspect]
     Active Substance: SULFASALAZINE
     Dates: start: 20160101, end: 20160101
  405. SULFASALAZINE [Suspect]
     Active Substance: SULFASALAZINE
     Dosage: 5 MILLIGRAM, QD
  406. SULFASALAZINE [Suspect]
     Active Substance: SULFASALAZINE
  407. SULFASALAZINE [Suspect]
     Active Substance: SULFASALAZINE
  408. SULFASALAZINE [Suspect]
     Active Substance: SULFASALAZINE
  409. SULFASALAZINE [Suspect]
     Active Substance: SULFASALAZINE
  410. SULFASALAZINE [Suspect]
     Active Substance: SULFASALAZINE
  411. SULFASALAZINE [Suspect]
     Active Substance: SULFASALAZINE
  412. SULFASALAZINE [Suspect]
     Active Substance: SULFASALAZINE
     Dosage: 5 MILLIGRAM, QD (1 EVERY 1 DAYS)
  413. SULFASALAZINE [Suspect]
     Active Substance: SULFASALAZINE
     Dosage: UNK, QD (1 EVERY1 DAYS)
  414. SULFASALAZINE [Suspect]
     Active Substance: SULFASALAZINE
  415. WARFARIN SODIUM [Suspect]
     Active Substance: WARFARIN SODIUM
     Indication: Deep vein thrombosis
     Dosage: 1 DOSAGE FORM, QD
     Dates: start: 201707
  416. WARFARIN SODIUM [Suspect]
     Active Substance: WARFARIN SODIUM
     Indication: Colitis ulcerative
  417. WARFARIN SODIUM [Suspect]
     Active Substance: WARFARIN SODIUM
     Indication: Crohn^s disease
  418. WARFARIN SODIUM [Suspect]
     Active Substance: WARFARIN SODIUM
  419. WARFARIN SODIUM [Suspect]
     Active Substance: WARFARIN SODIUM
     Dosage: 1 DOSAGE FORM, QD
     Dates: start: 2009, end: 2009
  420. WARFARIN SODIUM [Suspect]
     Active Substance: WARFARIN SODIUM
  421. WARFARIN SODIUM [Suspect]
     Active Substance: WARFARIN SODIUM
  422. AMINOSALICYLIC ACID [Suspect]
     Active Substance: AMINOSALICYLIC ACID
     Indication: Product used for unknown indication
  423. AMINOSALICYLIC ACID [Suspect]
     Active Substance: AMINOSALICYLIC ACID
  424. REMICADE [Suspect]
     Active Substance: INFLIXIMAB
     Indication: Crohn^s disease
     Dates: start: 20170101, end: 20170901
  425. REMICADE [Suspect]
     Active Substance: INFLIXIMAB
     Indication: Colitis ulcerative
  426. REMICADE [Suspect]
     Active Substance: INFLIXIMAB
     Dates: start: 20170101, end: 20170901
  427. CANDESARTAN [Suspect]
     Active Substance: CANDESARTAN
     Indication: Colitis ulcerative
  428. VYVANSE [Suspect]
     Active Substance: LISDEXAMFETAMINE DIMESYLATE
     Indication: Attention deficit hyperactivity disorder
  429. VYVANSE [Suspect]
     Active Substance: LISDEXAMFETAMINE DIMESYLATE
  430. WARFARIN SODIUM [Suspect]
     Active Substance: WARFARIN SODIUM
     Indication: Deep vein thrombosis
     Dosage: 1 DOSAGE FORM, QD (1 EVERY 1 DAYS)
  431. WARFARIN SODIUM [Suspect]
     Active Substance: WARFARIN SODIUM
     Indication: Colitis ulcerative
     Dosage: 32 DOSAGE FORM, QD (8 DOSAGE FORM 1 EVERY 8 WEEKS)
  432. WARFARIN SODIUM [Suspect]
     Active Substance: WARFARIN SODIUM
  433. WARFARIN SODIUM [Suspect]
     Active Substance: WARFARIN SODIUM
     Dosage: 8 DOSAGE FORM, QW
  434. WARFARIN SODIUM [Suspect]
     Active Substance: WARFARIN SODIUM
  435. CORTIFOAM [Suspect]
     Active Substance: HYDROCORTISONE ACETATE
     Indication: Deep vein thrombosis
     Dosage: 1 DOSAGE FORM, QD (1 EVERY 1 DAYS)
     Dates: start: 201707
  436. CORTIFOAM [Suspect]
     Active Substance: HYDROCORTISONE ACETATE
     Indication: Colitis ulcerative
  437. CORTIFOAM [Suspect]
     Active Substance: HYDROCORTISONE ACETATE
  438. CORTIFOAM [Suspect]
     Active Substance: HYDROCORTISONE ACETATE
  439. CORTIFOAM [Suspect]
     Active Substance: HYDROCORTISONE ACETATE
  440. CORTIFOAM [Suspect]
     Active Substance: HYDROCORTISONE ACETATE
  441. CORTIFOAM [Suspect]
     Active Substance: HYDROCORTISONE ACETATE
     Dosage: 1 DOSAGE FORM, QD (1 EVERY 1 DAYS)
  442. CORTIFOAM [Suspect]
     Active Substance: HYDROCORTISONE ACETATE
     Dosage: UNK, BIMONTHLY  (1 DOSE PER 8W)
  443. VITAMIN D3 [Suspect]
     Active Substance: CHOLECALCIFEROL
     Indication: Product used for unknown indication
  444. VITAMIN D3 [Suspect]
     Active Substance: CHOLECALCIFEROL
  445. VITAMIN D3 [Suspect]
     Active Substance: CHOLECALCIFEROL
     Dosage: 100 MILLIGRAM, QD (1 DOSE PER DAY)
  446. CHOLECALCIFEROL [Suspect]
     Active Substance: CHOLECALCIFEROL
     Indication: Product used for unknown indication
  447. CHOLECALCIFEROL [Suspect]
     Active Substance: CHOLECALCIFEROL
  448. TOZINAMERAN [Suspect]
     Active Substance: TOZINAMERAN
     Indication: Product used for unknown indication
     Dates: start: 20220322, end: 20220322
  449. ADALIMUMAB [Suspect]
     Active Substance: ADALIMUMAB
     Indication: Crohn^s disease
  450. ADALIMUMAB [Suspect]
     Active Substance: ADALIMUMAB
     Indication: Colitis ulcerative
  451. ADALIMUMAB [Suspect]
     Active Substance: ADALIMUMAB
     Indication: Deep vein thrombosis
  452. DESOXIMETASONE [Suspect]
     Active Substance: DESOXIMETASONE
     Indication: Colitis ulcerative
     Dosage: 1 DOSAGE FORM (1 EVERY 1 DAYS)
  453. DESOXIMETASONE [Suspect]
     Active Substance: DESOXIMETASONE
     Indication: Crohn^s disease
  454. DESOXIMETASONE [Suspect]
     Active Substance: DESOXIMETASONE
     Dosage: 3 DOSAGE FORM, BID (2 EVERY 1 DAYS)
  455. DESOXIMETASONE [Suspect]
     Active Substance: DESOXIMETASONE
  456. DESOXIMETASONE [Suspect]
     Active Substance: DESOXIMETASONE
  457. DESOXIMETASONE [Suspect]
     Active Substance: DESOXIMETASONE
  458. DESOXIMETASONE [Suspect]
     Active Substance: DESOXIMETASONE
     Dosage: 1 DOSAGE FORM, QD (1 EVERY 1 DAYS)
  459. DESOXIMETASONE [Suspect]
     Active Substance: DESOXIMETASONE
     Dosage: 8 DOSAGE FORM, QD
  460. DESOXIMETASONE [Suspect]
     Active Substance: DESOXIMETASONE
     Dosage: 3 DOSAGE FORM, BID (2 EVERY 1 DAYS)
  461. DESOXIMETASONE [Suspect]
     Active Substance: DESOXIMETASONE
  462. COMIRNATY (TOZINAMERAN) [Suspect]
     Active Substance: TOZINAMERAN
     Indication: Product used for unknown indication
  463. COMIRNATY (TOZINAMERAN) [Suspect]
     Active Substance: TOZINAMERAN
  464. DAPAGLIFLOZIN [Suspect]
     Active Substance: DAPAGLIFLOZIN
     Indication: Ill-defined disorder
  465. DAPAGLIFLOZIN [Suspect]
     Active Substance: DAPAGLIFLOZIN
     Indication: Cardiac failure chronic
  466. AZD-1222 [Suspect]
     Active Substance: AZD-1222
     Indication: COVID-19 immunisation
     Dates: start: 20210423, end: 20210423
  467. AZD-1222 [Suspect]
     Active Substance: AZD-1222
  468. AZD-1222 [Suspect]
     Active Substance: AZD-1222
     Dates: start: 20210416, end: 20210416
  469. AZD-1222 [Suspect]
     Active Substance: AZD-1222
     Dates: start: 20210508, end: 20210508
  470. AZD-1222 [Suspect]
     Active Substance: AZD-1222
     Dates: start: 20210713, end: 20210713
  471. AZD-1222 [Suspect]
     Active Substance: AZD-1222
     Dates: start: 20210318, end: 20210318
  472. AZD-1222 [Suspect]
     Active Substance: AZD-1222
     Dates: start: 20210130, end: 20210130
  473. AZD-1222 [Suspect]
     Active Substance: AZD-1222
     Dates: start: 20210319, end: 20210319
  474. AZD-1222 [Suspect]
     Active Substance: AZD-1222
     Dates: start: 20210204, end: 20210204
  475. AZD-1222 [Suspect]
     Active Substance: AZD-1222
     Dates: start: 20210215, end: 20210215
  476. AZD-1222 [Suspect]
     Active Substance: AZD-1222
     Dates: start: 20210521, end: 20210521
  477. AZD-1222 [Suspect]
     Active Substance: AZD-1222
  478. AZD-1222 [Suspect]
     Active Substance: AZD-1222
  479. AZD-1222 [Suspect]
     Active Substance: AZD-1222
  480. AZD-1222 [Suspect]
     Active Substance: AZD-1222
  481. AZD-1222 [Suspect]
     Active Substance: AZD-1222
  482. AZD-1222 [Suspect]
     Active Substance: AZD-1222
     Dates: start: 20210204, end: 20210204
  483. MEBEVERINE HYDROCHLORIDE [Suspect]
     Active Substance: MEBEVERINE HYDROCHLORIDE
     Indication: Product used for unknown indication
  484. MEBEVERINE HYDROCHLORIDE [Suspect]
     Active Substance: MEBEVERINE HYDROCHLORIDE
  485. MEBEVERINE HYDROCHLORIDE [Suspect]
     Active Substance: MEBEVERINE HYDROCHLORIDE
  486. MEBEVERINE HYDROCHLORIDE [Suspect]
     Active Substance: MEBEVERINE HYDROCHLORIDE
     Dosage: 200 MILLIGRAM, BID (2 DOSE PER 1DAY)
  487. OMEPRAZOLE [Suspect]
     Active Substance: OMEPRAZOLE
     Indication: Gastritis
  488. OMEPRAZOLE [Suspect]
     Active Substance: OMEPRAZOLE
  489. ESOMEPRAZOLE [Suspect]
     Active Substance: ESOMEPRAZOLE
     Indication: Gastritis
  490. LISDEXAMFETAMINE DIMESYLATE [Suspect]
     Active Substance: LISDEXAMFETAMINE DIMESYLATE
     Indication: Product used for unknown indication
  491. FUROSEMIDE [Suspect]
     Active Substance: FUROSEMIDE
     Indication: Product used for unknown indication
  492. FUROSEMIDE [Suspect]
     Active Substance: FUROSEMIDE
     Dosage: 20 MILLIGRAM, QD (1 DOSE PER DAY)
  493. HUMIRA [Suspect]
     Active Substance: ADALIMUMAB
     Indication: Deep vein thrombosis
  494. HUMIRA [Suspect]
     Active Substance: ADALIMUMAB
     Indication: Crohn^s disease
  495. WARFARIN SODIUM [Suspect]
     Active Substance: WARFARIN SODIUM
     Indication: Deep vein thrombosis
  496. HYDROCORTISONE ACETATE [Suspect]
     Active Substance: HYDROCORTISONE ACETATE
     Indication: Colitis ulcerative
  497. PREDNISONE [Suspect]
     Active Substance: PREDNISONE
     Indication: Colitis ulcerative
  498. CHOLECALCIFEROL [Suspect]
     Active Substance: CHOLECALCIFEROL
     Indication: Product used for unknown indication
  499. PARA-AMINOSALICYLIC ACID [Suspect]
     Active Substance: AMINOSALICYLIC ACID
     Indication: Deep vein thrombosis
  500. PARA-AMINOSALICYLIC ACID [Suspect]
     Active Substance: AMINOSALICYLIC ACID
     Indication: Colitis ulcerative
  501. OMEPRAZOLE [Suspect]
     Active Substance: OMEPRAZOLE
     Indication: Gastritis
  502. MESALAMINE [Suspect]
     Active Substance: MESALAMINE
     Indication: Colitis ulcerative
     Dates: start: 20160101, end: 20160101
  503. MESALAMINE [Suspect]
     Active Substance: MESALAMINE
     Dates: start: 20160101, end: 201610
  504. MESALAMINE [Suspect]
     Active Substance: MESALAMINE
  505. MESALAMINE [Suspect]
     Active Substance: MESALAMINE
  506. MESALAMINE [Suspect]
     Active Substance: MESALAMINE
     Dates: start: 201601, end: 201610
  507. MESALAMINE [Suspect]
     Active Substance: MESALAMINE
     Dosage: 50 MILLIGRAM, QD (1 DOSE PER 1 DAY)
  508. MESALAMINE [Suspect]
     Active Substance: MESALAMINE
     Dosage: 3 DOSAGE FORM, BID (2 DOSE PER DAY)
  509. MESALAMINE [Suspect]
     Active Substance: MESALAMINE
     Dosage: 6 DOSAGE FORM, QD (1 DOSE PER DAY)
  510. MESALAMINE [Suspect]
     Active Substance: MESALAMINE
     Dosage: 40 MILLIGRAM, QD (1 DOSE PER 1 DAY)
  511. MESALAMINE [Suspect]
     Active Substance: MESALAMINE
     Dosage: 1 DOSAGE FORM, QD (1 DOSE PER DAY)
  512. MESALAMINE [Suspect]
     Active Substance: MESALAMINE
  513. MESALAMINE [Suspect]
     Active Substance: MESALAMINE
     Dosage: 12 DOSAGE FORM, QD (1 DOSE PER DAY)
  514. MESALAMINE [Suspect]
     Active Substance: MESALAMINE
     Dosage: 4.8 GRAM, QD (1 DOSE PER 1 DAY)
  515. MESALAMINE [Suspect]
     Active Substance: MESALAMINE
     Dosage: 60 DOSAGE FORM, BID (2 DOSAGE FORM PER DAY)
  516. MESALAMINE [Suspect]
     Active Substance: MESALAMINE
     Dosage: 3 GRAM, QD (1 DOSE PER DAY)
  517. MESALAMINE [Suspect]
     Active Substance: MESALAMINE
     Dosage: 24 DOSAGE FORM, QD (1 DOSAGE FORM PER DAY)
  518. MESALAMINE [Suspect]
     Active Substance: MESALAMINE
     Dosage: 6 DOSAGE FORM, BID (2 DOSE PER DAY)
  519. MESALAMINE [Suspect]
     Active Substance: MESALAMINE
  520. MESALAMINE [Suspect]
     Active Substance: MESALAMINE
  521. ADALIMUMAB [Suspect]
     Active Substance: ADALIMUMAB
     Indication: Crohn^s disease
  522. ADALIMUMAB [Suspect]
     Active Substance: ADALIMUMAB
     Indication: Colitis ulcerative
  523. ADALIMUMAB [Suspect]
     Active Substance: ADALIMUMAB
     Indication: Deep vein thrombosis
  524. MESALAMINE [Suspect]
     Active Substance: MESALAMINE
     Indication: Colitis ulcerative
     Dosage: 6 DOSAGE FORM, QD
     Dates: start: 20161001
  525. MESALAMINE [Suspect]
     Active Substance: MESALAMINE
     Dosage: 2.4 GRAM, QD
     Dates: start: 20161001
  526. MESALAMINE [Suspect]
     Active Substance: MESALAMINE
  527. MESALAMINE [Suspect]
     Active Substance: MESALAMINE
     Dosage: 3 DOSAGE FORM, BID
     Dates: start: 201610
  528. MESALAMINE [Suspect]
     Active Substance: MESALAMINE
     Dates: start: 20170101, end: 20170901
  529. MESALAMINE [Suspect]
     Active Substance: MESALAMINE
     Dates: start: 20160101, end: 20161001
  530. MESALAMINE [Suspect]
     Active Substance: MESALAMINE
     Dosage: 4.8 GRAM, QD
     Dates: start: 20161001
  531. MESALAMINE [Suspect]
     Active Substance: MESALAMINE
  532. MESALAMINE [Suspect]
     Active Substance: MESALAMINE
  533. MESALAMINE [Suspect]
     Active Substance: MESALAMINE
  534. MESALAMINE [Suspect]
     Active Substance: MESALAMINE
  535. MESALAMINE [Suspect]
     Active Substance: MESALAMINE
  536. MESALAMINE [Suspect]
     Active Substance: MESALAMINE
  537. MESALAMINE [Suspect]
     Active Substance: MESALAMINE
  538. MESALAMINE [Suspect]
     Active Substance: MESALAMINE
  539. INFLIXIMAB [Suspect]
     Active Substance: INFLIXIMAB
     Indication: Colitis ulcerative
  540. INFLIXIMAB [Suspect]
     Active Substance: INFLIXIMAB
     Indication: Crohn^s disease
  541. INFLIXIMAB [Suspect]
     Active Substance: INFLIXIMAB
  542. INFLIXIMAB [Suspect]
     Active Substance: INFLIXIMAB
  543. INFLIXIMAB [Suspect]
     Active Substance: INFLIXIMAB
     Dosage: UNK, Q2W (1 EVERY 2 WEEKS)
  544. INFLIXIMAB [Suspect]
     Active Substance: INFLIXIMAB
  545. INFLIXIMAB [Suspect]
     Active Substance: INFLIXIMAB
  546. INFLIXIMAB [Suspect]
     Active Substance: INFLIXIMAB
  547. INFLIXIMAB [Suspect]
     Active Substance: INFLIXIMAB
     Dosage: UNK, Q2W (1 EVERY 2 WEEKS)
  548. INFLIXIMAB [Suspect]
     Active Substance: INFLIXIMAB
  549. INFLIXIMAB [Suspect]
     Active Substance: INFLIXIMAB
  550. INFLIXIMAB [Suspect]
     Active Substance: INFLIXIMAB
  551. INFLIXIMAB [Suspect]
     Active Substance: INFLIXIMAB
  552. INFLIXIMAB [Suspect]
     Active Substance: INFLIXIMAB
  553. INFLIXIMAB [Suspect]
     Active Substance: INFLIXIMAB
  554. INFLIXIMAB [Suspect]
     Active Substance: INFLIXIMAB
  555. INFLIXIMAB [Suspect]
     Active Substance: INFLIXIMAB
  556. INFLIXIMAB [Suspect]
     Active Substance: INFLIXIMAB
  557. CORTISONE [Suspect]
     Active Substance: CORTISONE
     Indication: Crohn^s disease
     Dosage: 8 DOSAGE FORM, QD (8 DOSAGE FORM, 1 EVERY 1 DAYS)
  558. CORTISONE [Suspect]
     Active Substance: CORTISONE
     Indication: Colitis ulcerative
  559. CORTISONE [Suspect]
     Active Substance: CORTISONE
  560. CORTISONE [Suspect]
     Active Substance: CORTISONE
     Dosage: 1 DOSAGE FORM, QD (1 DOSAGE 1 EVERY 1 DAY)
  561. CORTISONE [Suspect]
     Active Substance: CORTISONE
  562. CORTISONE [Suspect]
     Active Substance: CORTISONE
     Dosage: UNK, QD (1 EVERY1 DAYS)
  563. CORTISONE [Suspect]
     Active Substance: CORTISONE
  564. CORTISONE [Suspect]
     Active Substance: CORTISONE
  565. CORTISONE [Suspect]
     Active Substance: CORTISONE
     Dosage: 8 DOSAGE FORM, BIMONTHLY (1 DOSE PER 8W)
  566. CORTISONE [Suspect]
     Active Substance: CORTISONE
     Dosage: 8 MILLIGRAM, QW (1 DOSE PER 1W)
  567. CORTISONE [Suspect]
     Active Substance: CORTISONE
     Dosage: 6 MILLIGRAM, QW (1 DOSE PER 1W)
  568. MESALAMINE [Suspect]
     Active Substance: MESALAMINE
     Indication: Colitis ulcerative
     Dosage: 6 DOSAGE FORM, QD
     Dates: start: 20161001
  569. MESALAMINE [Suspect]
     Active Substance: MESALAMINE
     Dosage: 6 DOSAGE FORM, QD (3 DOSAGE FORM, BID)
     Dates: start: 201610
  570. LEVOTHYROXINE SODIUM [Suspect]
     Active Substance: LEVOTHYROXINE SODIUM
     Indication: Product used for unknown indication
  571. ACETAMINOPHEN [Suspect]
     Active Substance: ACETAMINOPHEN
     Indication: Ill-defined disorder
     Dosage: 2000 MILLIGRAM, QD (500 MILLIRAM, 4 DOSE PER 1 DAY)
  572. ACETAMINOPHEN [Suspect]
     Active Substance: ACETAMINOPHEN
  573. ALBENDAZOLE [Suspect]
     Active Substance: ALBENDAZOLE
     Indication: Deep vein thrombosis
  574. ALBENDAZOLE [Suspect]
     Active Substance: ALBENDAZOLE
     Indication: Colitis ulcerative
  575. VEDOLIZUMAB [Suspect]
     Active Substance: VEDOLIZUMAB
     Indication: Colitis ulcerative
     Dosage: 1 DOSAGE FORM, QD
     Dates: start: 2017, end: 2017
  576. VEDOLIZUMAB [Suspect]
     Active Substance: VEDOLIZUMAB
     Indication: Deep vein thrombosis
  577. MESALAMINE [Suspect]
     Active Substance: MESALAMINE
     Indication: Colitis ulcerative
     Dates: start: 20160101, end: 20160101
  578. MESALAMINE [Suspect]
     Active Substance: MESALAMINE
  579. MESALAMINE [Suspect]
     Active Substance: MESALAMINE
  580. MESALAMINE [Suspect]
     Active Substance: MESALAMINE
  581. MESALAMINE [Suspect]
     Active Substance: MESALAMINE
  582. MESALAMINE [Suspect]
     Active Substance: MESALAMINE
     Dosage: 50 MILLIGRAM, QD (1 DOSE PER 1 DAY)
  583. MESALAMINE [Suspect]
     Active Substance: MESALAMINE
     Dosage: 6 DOSAGE FORM, QD (3 DOSAGE FORM, 2 DOSE PER 1 DAY)
  584. MESALAMINE [Suspect]
     Active Substance: MESALAMINE
     Dosage: 24 DOSAGE FORM, QD (1 DOSE PER 1 DAY)
  585. MESALAMINE [Suspect]
     Active Substance: MESALAMINE
  586. MESALAMINE [Suspect]
     Active Substance: MESALAMINE
     Dosage: 40 MILLIGRAM, QD ( 1 DOSE PER 1 DAY)
  587. MESALAMINE [Suspect]
     Active Substance: MESALAMINE
     Dosage: 12 DOSAGE FORM, QD (1 DOSE PER 1 DAY)
  588. MESALAMINE [Suspect]
     Active Substance: MESALAMINE
  589. MESALAMINE [Suspect]
     Active Substance: MESALAMINE
     Dosage: 4.8 GRAM, QD (1 DOSE PER 1 DAY)
  590. MESALAMINE [Suspect]
     Active Substance: MESALAMINE
     Dosage: 60 DOSAGE FORM, QD (30 DOSAGE FORM, 2 DOSE PER 1 DAY)
  591. MESALAMINE [Suspect]
     Active Substance: MESALAMINE
     Dosage: 3 GRAM, QD (1 DOSE PER 1 DAY)
  592. MESALAMINE [Suspect]
     Active Substance: MESALAMINE
     Dosage: 12 DOSAGE FORM, QD (6 DOSAGE FORM, 2 DOSE PER 1 DAY)
  593. MESALAMINE [Suspect]
     Active Substance: MESALAMINE
     Dosage: 2.4 GRAM, MONTHLY
  594. MESALAMINE [Suspect]
     Active Substance: MESALAMINE
  595. MESALAMINE [Suspect]
     Active Substance: MESALAMINE
  596. WARFARIN [Suspect]
     Active Substance: WARFARIN
     Indication: Product used for unknown indication
  597. ROSUVASTATIN [Suspect]
     Active Substance: ROSUVASTATIN
     Indication: Blood cholesterol increased
  598. ROSUVASTATIN [Suspect]
     Active Substance: ROSUVASTATIN
     Dosage: 10 MILLIGRAM, QD (1 DOSE PER 1 DAY )
  599. ASACOL [Suspect]
     Active Substance: MESALAMINE
     Indication: Colitis ulcerative
     Dosage: 12 DOSAGE FORM, QD (1 DOSE PER DAY)
  600. ASACOL [Suspect]
     Active Substance: MESALAMINE
     Dosage: 2.4 GRAM, QD (1 DOSE PER DAY)
     Dates: start: 20161001
  601. ASACOL [Suspect]
     Active Substance: MESALAMINE
     Dosage: 3 GRAM, QD (1 DOSE PER DAY)
     Dates: start: 20161001
  602. ASACOL [Suspect]
     Active Substance: MESALAMINE
     Dosage: 4.8 GRAM, QD  (1 DOSE PER DAY)
     Dates: start: 20161001
  603. ASACOL [Suspect]
     Active Substance: MESALAMINE
  604. ASACOL [Suspect]
     Active Substance: MESALAMINE
  605. ASACOL [Suspect]
     Active Substance: MESALAMINE
     Dosage: 6 DOSAGE FORM, BID (2 DOSE PER DAY)
  606. ASACOL [Suspect]
     Active Substance: MESALAMINE
  607. ASACOL [Suspect]
     Active Substance: MESALAMINE
     Dosage: 6 DOSAGE FORM, QD (1 DOSE PER DAY)
     Dates: start: 20161001
  608. ASACOL [Suspect]
     Active Substance: MESALAMINE
     Dosage: 1 DOSAGE FORM, QD (1 DOSE PER DAY)
  609. ASACOL [Suspect]
     Active Substance: MESALAMINE
     Dosage: 3 DOSAGE FORM, BID (1 DOSE PER 12 HR)
  610. ASACOL [Suspect]
     Active Substance: MESALAMINE
     Dosage: 40 MILLIGRAM, QD (1 DOSE PER DAY)
  611. ASACOL [Suspect]
     Active Substance: MESALAMINE
     Dosage: 50 MILLIGRAM, QD (1 DOSE PER DAY)
  612. TOFACITINIB [Suspect]
     Active Substance: TOFACITINIB
     Indication: Colitis ulcerative
  613. BUDESONIDE [Suspect]
     Active Substance: BUDESONIDE
     Indication: Colitis ulcerative
     Dosage: 1 DOSAGE FORM, QD (1 DOSE PER ONE DAY)
  614. BUDESONIDE [Suspect]
     Active Substance: BUDESONIDE
     Dosage: 1 DOSAGE FORM, QD (1 DOSE PER ONE DAY)
  615. BUDESONIDE [Suspect]
     Active Substance: BUDESONIDE
     Dosage: 8 DOSAGE FORM, BIMONTHLY (1 DOSE PER 8W)
     Dates: start: 201707
  616. BUDESONIDE [Suspect]
     Active Substance: BUDESONIDE
     Dosage: 8 DOSAGE FORM, BIMONTHLY (1 DOSE PER 8W)
  617. BUDESONIDE [Suspect]
     Active Substance: BUDESONIDE
     Dosage: UNK, BIMONTHLY (1 DOSE PER 8W)
  618. BUDESONIDE [Suspect]
     Active Substance: BUDESONIDE
  619. BUDESONIDE [Suspect]
     Active Substance: BUDESONIDE
     Dosage: 8 DOSAGE FORM, QD (1 DOSE PER 1 DAY)
  620. VEDOLIZUMAB [Suspect]
     Active Substance: VEDOLIZUMAB
     Indication: Colitis ulcerative
  621. VEDOLIZUMAB [Suspect]
     Active Substance: VEDOLIZUMAB
     Indication: Deep vein thrombosis
  622. VEDOLIZUMAB [Suspect]
     Active Substance: VEDOLIZUMAB
  623. VEDOLIZUMAB [Suspect]
     Active Substance: VEDOLIZUMAB
  624. VEDOLIZUMAB [Suspect]
     Active Substance: VEDOLIZUMAB
  625. EPINEPHRINE HYDROCHLORIDE [Suspect]
     Active Substance: EPINEPHRINE HYDROCHLORIDE
     Indication: Product used for unknown indication
  626. INFLIXIMAB [Suspect]
     Active Substance: INFLIXIMAB
     Indication: Crohn^s disease
  627. INFLIXIMAB [Suspect]
     Active Substance: INFLIXIMAB
     Indication: Colitis ulcerative
  628. INFLIXIMAB [Suspect]
     Active Substance: INFLIXIMAB
  629. INFLIXIMAB [Suspect]
     Active Substance: INFLIXIMAB
  630. INFLIXIMAB [Suspect]
     Active Substance: INFLIXIMAB
  631. INFLIXIMAB [Suspect]
     Active Substance: INFLIXIMAB
  632. INFLIXIMAB [Suspect]
     Active Substance: INFLIXIMAB
  633. INFLIXIMAB [Suspect]
     Active Substance: INFLIXIMAB
     Dates: start: 20170101, end: 20170901
  634. INFLIXIMAB [Suspect]
     Active Substance: INFLIXIMAB
  635. INFLIXIMAB [Suspect]
     Active Substance: INFLIXIMAB
     Dates: start: 20170101, end: 20170901
  636. INFLIXIMAB [Suspect]
     Active Substance: INFLIXIMAB
     Dosage: UNK, 6XW (1 DOSE PER 6W)
  637. INFLIXIMAB [Suspect]
     Active Substance: INFLIXIMAB
     Dosage: 120 MILLIGRAM, BIWEEKLY (1 DOSE PER 8 W)
  638. INFLIXIMAB [Suspect]
     Active Substance: INFLIXIMAB
     Dosage: 8 DOSAGE FORM, BIMONTHLY (1 DOSE PER 8W)
  639. OXYCODONE [Suspect]
     Active Substance: OXYCODONE
     Indication: Product used for unknown indication
  640. OXYCODONE [Suspect]
     Active Substance: OXYCODONE
     Dosage: 5 MILLIGRAM, BID (2 DOSES PER DAY)
  641. ASPIRIN [Suspect]
     Active Substance: ASPIRIN
     Indication: Ill-defined disorder
  642. INFLECTRA [Suspect]
     Active Substance: INFLIXIMAB-DYYB
     Indication: Crohn^s disease
  643. INFLECTRA [Suspect]
     Active Substance: INFLIXIMAB-DYYB
     Indication: Colitis ulcerative
  644. INFLECTRA [Suspect]
     Active Substance: INFLIXIMAB-DYYB
  645. INFLECTRA [Suspect]
     Active Substance: INFLIXIMAB-DYYB
  646. INFLECTRA [Suspect]
     Active Substance: INFLIXIMAB-DYYB
  647. INFLECTRA [Suspect]
     Active Substance: INFLIXIMAB-DYYB
  648. INFLECTRA [Suspect]
     Active Substance: INFLIXIMAB-DYYB
  649. INFLECTRA [Suspect]
     Active Substance: INFLIXIMAB-DYYB
  650. INFLECTRA [Suspect]
     Active Substance: INFLIXIMAB-DYYB
  651. PANADOL [Suspect]
     Active Substance: ACETAMINOPHEN
     Indication: Ill-defined disorder
     Dosage: 200 MILLIGRAM, TID
  652. CRESTOR [Suspect]
     Active Substance: ROSUVASTATIN CALCIUM
     Indication: Ill-defined disorder
  653. CRESTOR [Suspect]
     Active Substance: ROSUVASTATIN CALCIUM
     Dosage: 10 MILLIGRAM, QD
  654. CALTRATE [Suspect]
     Active Substance: CALCIUM CARBONATE
     Indication: Product used for unknown indication
  655. CALTRATE [Suspect]
     Active Substance: CALCIUM CARBONATE
     Dosage: 100 MILLIGRAM, QD
  656. CANDESARTAN [Suspect]
     Active Substance: CANDESARTAN
     Indication: Product used for unknown indication
  657. LISDEXAMFETAMINE DIMESYLATE [Suspect]
     Active Substance: LISDEXAMFETAMINE DIMESYLATE
     Indication: Product used for unknown indication
  658. VEDOLIZUMAB [Suspect]
     Active Substance: VEDOLIZUMAB
     Indication: Colitis ulcerative
     Dosage: 1 DOSAGE FORM, QD (1 DOSE PER DAY)
  659. VEDOLIZUMAB [Suspect]
     Active Substance: VEDOLIZUMAB
     Indication: Deep vein thrombosis
     Dosage: 8 DOSAGE FORM, BIMONTHLY (1 DOSE PER 8W)
  660. VEDOLIZUMAB [Suspect]
     Active Substance: VEDOLIZUMAB
  661. RIVAROXABAN [Concomitant]
     Active Substance: RIVAROXABAN
     Indication: Ill-defined disorder
  662. Cortiment [Concomitant]
     Indication: Colitis ulcerative
  663. METHOTREXATE [Concomitant]
     Active Substance: METHOTREXATE
     Indication: Colitis ulcerative
     Dates: start: 20090101, end: 20160101
  664. METHOTREXATE [Concomitant]
     Active Substance: METHOTREXATE
     Dates: start: 20090101, end: 20160101
  665. METHOTREXATE [Concomitant]
     Active Substance: METHOTREXATE
     Dates: start: 201709, end: 201709
  666. METHOTREXATE [Concomitant]
     Active Substance: METHOTREXATE
  667. METHOTREXATE [Concomitant]
     Active Substance: METHOTREXATE
  668. METHOTREXATE [Concomitant]
     Active Substance: METHOTREXATE
  669. METHOTREXATE [Concomitant]
     Active Substance: METHOTREXATE
  670. METHOTREXATE [Concomitant]
     Active Substance: METHOTREXATE
  671. METHOTREXATE [Concomitant]
     Active Substance: METHOTREXATE
  672. HUMIRA [Concomitant]
     Active Substance: ADALIMUMAB
     Indication: Crohn^s disease
  673. HUMIRA [Concomitant]
     Active Substance: ADALIMUMAB
     Indication: Deep vein thrombosis
  674. HUMIRA [Concomitant]
     Active Substance: ADALIMUMAB
     Indication: Colitis ulcerative
  675. HUMIRA [Concomitant]
     Active Substance: ADALIMUMAB
  676. HUMIRA [Concomitant]
     Active Substance: ADALIMUMAB
  677. PREDNISONE [Concomitant]
     Active Substance: PREDNISONE
     Indication: Colitis ulcerative
  678. PREDNISONE [Concomitant]
     Active Substance: PREDNISONE
     Dosage: 40 MILLIGRAM, QD
  679. XELJANZ [Concomitant]
     Active Substance: TOFACITINIB CITRATE
     Indication: Colitis ulcerative
     Dosage: 10 MILLIGRAM, QD, (5MG BID)
  680. XELJANZ [Concomitant]
     Active Substance: TOFACITINIB CITRATE
     Dosage: 5 MILLIGRAM, BID
  681. XELJANZ [Concomitant]
     Active Substance: TOFACITINIB CITRATE
     Dosage: 10 MILLIGRAM, QD, (5MG BID)
  682. XELJANZ [Concomitant]
     Active Substance: TOFACITINIB CITRATE
     Dosage: 10 MILLIGRAM, BID (2 DOSE PER DAY)
  683. XELJANZ [Concomitant]
     Active Substance: TOFACITINIB CITRATE
     Dosage: 10 MILLIGRAM, QD (1 DOSE PER DAY)
  684. XELJANZ [Concomitant]
     Active Substance: TOFACITINIB CITRATE
     Dosage: 5 MILLIGRAM, QD (1 DOSE PER DAY)
  685. XELJANZ [Concomitant]
     Active Substance: TOFACITINIB CITRATE
  686. TOFACITINIB CITRATE [Concomitant]
     Active Substance: TOFACITINIB CITRATE
     Indication: Ill-defined disorder
  687. HYDROCORTISONE [Concomitant]
     Active Substance: HYDROCORTISONE
     Indication: Colitis ulcerative
     Dosage: 1 DOSAGE FORM, QD
  688. MESALAMINE [Concomitant]
     Active Substance: MESALAMINE
     Indication: Colitis ulcerative
  689. ALBENDAZOLE [Concomitant]
     Active Substance: ALBENDAZOLE
     Indication: Crohn^s disease
  690. ALBENDAZOLE [Concomitant]
     Active Substance: ALBENDAZOLE
     Indication: Colitis ulcerative
     Dates: start: 20090101, end: 20160101
  691. ALBENDAZOLE [Concomitant]
     Active Substance: ALBENDAZOLE
     Indication: Deep vein thrombosis
  692. POLYETHYLENE GLYCOL 3350\POTASSIUM CHLORIDE\SODIUM BICARBONATE\SODIUM [Concomitant]
     Active Substance: POLYETHYLENE GLYCOL 3350\POTASSIUM CHLORIDE\SODIUM BICARBONATE\SODIUM CHLORIDE
  693. Zerobase [Concomitant]
  694. BETNOVATE [Concomitant]
     Active Substance: BETAMETHASONE
  695. LYRICA [Concomitant]
     Active Substance: PREGABALIN
     Indication: Ill-defined disorder
  696. GAVISCON [Concomitant]
     Active Substance: ALUMINUM HYDROXIDE\MAGNESIUM CARBONATE
  697. Rennie [Concomitant]
  698. CALCIUM CARBONATE\CHOLECALCIFEROL [Concomitant]
     Active Substance: CALCIUM CARBONATE\CHOLECALCIFEROL
  699. LATANOPROST [Concomitant]
     Active Substance: LATANOPROST
  700. MOVICOL [Concomitant]
     Active Substance: POLYETHYLENE GLYCOL 3350\POTASSIUM CHLORIDE\SODIUM BICARBONATE\SODIUM CHLORIDE
  701. ATORVASTATIN [Concomitant]
     Active Substance: ATORVASTATIN
  702. ROSUVASTATIN [Concomitant]
     Active Substance: ROSUVASTATIN
     Indication: Ill-defined disorder
  703. ROSUVASTATIN [Concomitant]
     Active Substance: ROSUVASTATIN
     Indication: Blood cholesterol increased
     Dosage: 10 MILLIGRAM, QD
  704. ROSUVASTATIN [Concomitant]
     Active Substance: ROSUVASTATIN
  705. AMLODIPINE [Concomitant]
     Active Substance: AMLODIPINE BESYLATE
  706. EMPAGLIFLOZIN [Concomitant]
     Active Substance: EMPAGLIFLOZIN
     Indication: Ill-defined disorder
  707. LATANOPROST [Concomitant]
     Active Substance: LATANOPROST
     Indication: Crohn^s disease
  708. LANSOPRAZOLE [Concomitant]
     Active Substance: LANSOPRAZOLE
     Indication: Ill-defined disorder
  709. BISOPROLOL [Concomitant]
     Active Substance: BISOPROLOL
     Indication: Ill-defined disorder
  710. BISOPROLOL [Concomitant]
     Active Substance: BISOPROLOL
     Indication: Dyscalculia
  711. DORZOLAMIDE HYDROCHLORIDE [Concomitant]
     Active Substance: DORZOLAMIDE HYDROCHLORIDE
     Indication: Ill-defined disorder
  712. ACETAMINOPHEN [Concomitant]
     Active Substance: ACETAMINOPHEN
  713. OMEPRAZOLE [Concomitant]
     Active Substance: OMEPRAZOLE
  714. RAMIPRIL [Concomitant]
     Active Substance: RAMIPRIL
     Indication: Ill-defined disorder
  715. TETRAHYDROZOLINE HYDROCHLORIDE [Concomitant]
     Active Substance: TETRAHYDROZOLINE HYDROCHLORIDE
  716. TAMSULOSIN HYDROCHLORIDE [Concomitant]
     Active Substance: TAMSULOSIN HYDROCHLORIDE
     Indication: Ill-defined disorder
  717. PRAVASTATIN [Concomitant]
     Active Substance: PRAVASTATIN
     Indication: Ill-defined disorder
  718. DAPAGLIFLOZIN [Concomitant]
     Active Substance: DAPAGLIFLOZIN
  719. NITROFURANTOIN [Concomitant]
     Active Substance: NITROFURANTOIN
     Indication: Ill-defined disorder
  720. FOLIC ACID [Concomitant]
     Active Substance: FOLIC ACID
     Indication: Ill-defined disorder
  721. SULFASALAZINE [Concomitant]
     Active Substance: SULFASALAZINE
     Indication: Colitis ulcerative
     Dates: start: 2009, end: 2016
  722. SULFASALAZINE [Concomitant]
     Active Substance: SULFASALAZINE
     Indication: Arthritis
     Dates: start: 20160101, end: 20160101
  723. SULFASALAZINE [Concomitant]
     Active Substance: SULFASALAZINE
     Indication: Colitis ulcerative
     Dates: start: 20090101, end: 20160101
  724. SULFASALAZINE [Concomitant]
     Active Substance: SULFASALAZINE
     Indication: Product used for unknown indication
     Dates: start: 201709, end: 201709
  725. SULFASALAZINE [Concomitant]
     Active Substance: SULFASALAZINE
     Dates: start: 20091001, end: 20161001
  726. SULFASALAZINE [Concomitant]
     Active Substance: SULFASALAZINE
  727. SULFASALAZINE [Concomitant]
     Active Substance: SULFASALAZINE
  728. FESOTERODINE FUMARATE [Concomitant]
     Active Substance: FESOTERODINE FUMARATE
  729. CLOBETASONE BUTYRATE [Concomitant]
     Active Substance: CLOBETASONE BUTYRATE
     Indication: Ill-defined disorder
  730. CITALOPRAM [Concomitant]
     Active Substance: CITALOPRAM
     Indication: Ill-defined disorder
  731. ACETAMINOPHEN [Concomitant]
     Active Substance: ACETAMINOPHEN
     Indication: Ill-defined disorder
  732. SULFASALAZINE [Concomitant]
     Active Substance: SULFASALAZINE
     Indication: Colitis ulcerative
     Dosage: 3 MILLIGRAM, QD
  733. SULFASALAZINE [Concomitant]
     Active Substance: SULFASALAZINE
     Dosage: 5 MILLIGRAM, QD
  734. SULFASALAZINE [Concomitant]
     Active Substance: SULFASALAZINE
  735. AMLODIPINE BESYLATE [Concomitant]
     Active Substance: AMLODIPINE BESYLATE
  736. POLYETHYLENE GLYCOL 3350\POTASSIUM CHLORIDE\SODIUM BICARBONATE\SODIUM [Concomitant]
     Active Substance: POLYETHYLENE GLYCOL 3350\POTASSIUM CHLORIDE\SODIUM BICARBONATE\SODIUM CHLORIDE
     Indication: Ill-defined disorder
  737. ATORVASTATIN CALCIUM [Concomitant]
     Active Substance: ATORVASTATIN CALCIUM
  738. ASPIRIN [Concomitant]
     Active Substance: ASPIRIN
  739. Calcium carbonate;Sodium alginate;Sodium bicarbonate [Concomitant]
  740. MINERAL OIL [Concomitant]
     Active Substance: MINERAL OIL
     Indication: Ill-defined disorder
  741. NAPHAZOLINE HYDROCHLORIDE [Concomitant]
     Active Substance: NAPHAZOLINE HYDROCHLORIDE
     Indication: Ill-defined disorder
  742. Alginic acid;Aluminium hydroxide gel, dried [Concomitant]
     Indication: Ill-defined disorder
  743. Alginic acid;Aluminium hydroxide gel, dried [Concomitant]
  744. HUMIRA [Concomitant]
     Active Substance: ADALIMUMAB
     Indication: Crohn^s disease
  745. HUMIRA [Concomitant]
     Active Substance: ADALIMUMAB
     Indication: Deep vein thrombosis
  746. HUMIRA [Concomitant]
     Active Substance: ADALIMUMAB
     Indication: Colitis ulcerative
  747. AMLODIPINE BESYLATE [Concomitant]
     Active Substance: AMLODIPINE BESYLATE
  748. Rennie [Concomitant]
  749. ALUMINUM HYDROXIDE GEL [Concomitant]
     Active Substance: ALGELDRATE
  750. SODIUM ALGINATE [Concomitant]
     Active Substance: SODIUM ALGINATE
  751. CALCIUM CARBONATE\CHOLECALCIFEROL [Concomitant]
     Active Substance: CALCIUM CARBONATE\CHOLECALCIFEROL
  752. Aluminium hydroxide;Calcium carbonate;Sodium alginate;Sodium bicarbona [Concomitant]
  753. POLYETHYLENE GLYCOLS [Concomitant]
     Active Substance: POLYETHYLENE GLYCOLS
  754. PARAFFIN [Concomitant]
     Active Substance: PARAFFIN
  755. TETRAHYDROZOLINE HYDROCHLORIDE [Concomitant]
     Active Substance: TETRAHYDROZOLINE HYDROCHLORIDE
     Indication: Crohn^s disease
  756. TETRAHYDROZOLINE HYDROCHLORIDE [Concomitant]
     Active Substance: TETRAHYDROZOLINE HYDROCHLORIDE
     Indication: Colitis ulcerative

REACTIONS (53)
  - Loss of personal independence in daily activities [Not Recovered/Not Resolved]
  - Deep vein thrombosis [Not Recovered/Not Resolved]
  - Bronchiectasis [Not Recovered/Not Resolved]
  - Weight decreased [Not Recovered/Not Resolved]
  - Impaired quality of life [Not Recovered/Not Resolved]
  - Colitis ulcerative [Not Recovered/Not Resolved]
  - Condition aggravated [Not Recovered/Not Resolved]
  - Rectal haemorrhage [Not Recovered/Not Resolved]
  - Haematochezia [Not Recovered/Not Resolved]
  - Impaired work ability [Not Recovered/Not Resolved]
  - Rash [Not Recovered/Not Resolved]
  - Frequent bowel movements [Not Recovered/Not Resolved]
  - Steroid dependence [Not Recovered/Not Resolved]
  - Stress [Not Recovered/Not Resolved]
  - Abdominal discomfort [Not Recovered/Not Resolved]
  - Accidental overdose [Not Recovered/Not Resolved]
  - Arthritis [Not Recovered/Not Resolved]
  - Burns second degree [Not Recovered/Not Resolved]
  - Cardiac murmur [Not Recovered/Not Resolved]
  - Catarrh [Not Recovered/Not Resolved]
  - Cerebrovascular accident [Not Recovered/Not Resolved]
  - Confusional state [Not Recovered/Not Resolved]
  - COVID-19 [Not Recovered/Not Resolved]
  - Depression [Not Recovered/Not Resolved]
  - Dysgeusia [Not Recovered/Not Resolved]
  - Eczema [Not Recovered/Not Resolved]
  - Fatigue [Not Recovered/Not Resolved]
  - Gingival pain [Not Recovered/Not Resolved]
  - Headache [Not Recovered/Not Resolved]
  - Hypopnoea [Not Recovered/Not Resolved]
  - Migraine [Not Recovered/Not Resolved]
  - Nightmare [Not Recovered/Not Resolved]
  - Pain [Not Recovered/Not Resolved]
  - Pain in extremity [Not Recovered/Not Resolved]
  - Palpitations [Not Recovered/Not Resolved]
  - Parosmia [Not Recovered/Not Resolved]
  - Pulmonary embolism [Not Recovered/Not Resolved]
  - Pyrexia [Not Recovered/Not Resolved]
  - Rhinitis [Not Recovered/Not Resolved]
  - Somnolence [Not Recovered/Not Resolved]
  - Swollen tongue [Not Recovered/Not Resolved]
  - Systemic lupus erythematosus [Not Recovered/Not Resolved]
  - Tinnitus [Not Recovered/Not Resolved]
  - Tubulointerstitial nephritis [Not Recovered/Not Resolved]
  - Vertigo [Not Recovered/Not Resolved]
  - Adverse drug reaction [Not Recovered/Not Resolved]
  - Alcohol poisoning [Not Recovered/Not Resolved]
  - Product use in unapproved indication [Not Recovered/Not Resolved]
  - Off label use [Not Recovered/Not Resolved]
  - Medication error [Not Recovered/Not Resolved]
  - Drug ineffective [Not Recovered/Not Resolved]
  - Intentional product use issue [Not Recovered/Not Resolved]
  - Inappropriate schedule of product administration [Not Recovered/Not Resolved]

NARRATIVE: CASE EVENT DATE: 20080101
